FAERS Safety Report 8738908 (Version 2)
Quarter: 2012Q4

REPORT INFORMATION
  Report Type: 
  Country: DE (occurrence: DE)
  Receive Date: 20120823
  Receipt Date: 20121019
  Transmission Date: 20130627
  Serious: Yes (Other)
  Sender: FDA-Public Use
  Company Number: DE-ASTRAZENECA-2012SE57799

PATIENT
  Age: 19 Month
  Sex: Female
  Weight: 43 kg

DRUGS (1)
  1. ENTOCORT [Suspect]
     Indication: CROHN^S DISEASE
     Route: 048
     Dates: start: 201206, end: 201209

REACTIONS (2)
  - Blindness [Recovered/Resolved]
  - Circulatory collapse [Recovered/Resolved]
